FAERS Safety Report 17969659 (Version 1)
Quarter: 2020Q3

REPORT INFORMATION
  Report Type: Spontaneous
  Country: US (occurrence: US)
  Receive Date: 20200701
  Receipt Date: 20200701
  Transmission Date: 20201103
  Serious: Yes (Hospitalization)
  Sender: FDA-Public Use
  Company Number: US-PFIZER INC-2020251226

PATIENT
  Age: 52 Year
  Sex: Female

DRUGS (1)
  1. DILANTIN [Suspect]
     Active Substance: PHENYTOIN
     Indication: SEIZURE
     Dosage: UNK

REACTIONS (8)
  - Stress [Unknown]
  - Weight fluctuation [Unknown]
  - Drug ineffective [Unknown]
  - Tooth disorder [Unknown]
  - Swelling [Unknown]
  - Visual impairment [Unknown]
  - Expired product administered [Unknown]
  - Anxiety [Unknown]

NARRATIVE: CASE EVENT DATE: 2019
